FAERS Safety Report 8350012 (Version 7)
Quarter: 2012Q4

REPORT INFORMATION
  Report Type: 
  Country: US (occurrence: US)
  Receive Date: 20120123
  Receipt Date: 20120906
  Transmission Date: 20130627
  Serious: Yes (Hospitalization, Other)
  Sender: FDA-Public Use
  Company Number: US-ELI_LILLY_AND_COMPANY-US201108008151

PATIENT
  Age: 75 None
  Sex: Female

DRUGS (25)
  1. FORTEO [Suspect]
     Indication: OSTEOPOROSIS POSTMENOPAUSAL
     Dosage: 20 ug, qd
     Route: 065
  2. FORTEO [Suspect]
     Dosage: 20 ug, qd
  3. FORTEO [Suspect]
     Dosage: 20 ug, qd
  4. FORTEO [Suspect]
     Dosage: 20 ug, qd
  5. FORTEO [Suspect]
     Dosage: 20 ug, qd
  6. OXYGEN [Concomitant]
     Indication: PULMONARY ARTERIAL HYPERTENSION
  7. LEVOTHYROXINE [Concomitant]
     Indication: THYROID DISORDER
     Dosage: 25 ug, qd
  8. ENALAPRIL [Concomitant]
     Indication: BLOOD PRESSURE
     Dosage: 5 mg, qd
  9. FUROSEMIDE [Concomitant]
     Indication: JOINT SWELLING
     Dosage: 40 mg, qd
  10. POTASSIUM CHLORIDE [Concomitant]
     Dosage: 10 mEq, qd
  11. TRACLEER [Concomitant]
     Dosage: 125 mg, qd
  12. ROPINIROLE [Concomitant]
     Indication: RESTLESS LEGS SYNDROME
     Dosage: 1 mg, bid
  13. FERROUS SULFATE [Concomitant]
     Indication: ANAEMIA
     Dosage: 365 mg, bid
  14. OMEPRAZOLE [Concomitant]
     Dosage: 20 mg, bid
  15. GABAPENTIN [Concomitant]
     Dosage: 400 mg, bid
  16. GLUCOSAMINE CHONDROITIN [Concomitant]
     Dosage: 1500 mg, bid
  17. MULTIVITAMIN [Concomitant]
     Dosage: UNK, qd
  18. OMEGA 3 [Concomitant]
     Dosage: UNK, qd
  19. FLAXSEED OIL [Concomitant]
     Dosage: 1300 mg, qd
  20. SINGULAIR [Concomitant]
     Dosage: 10 mg, qd
  21. TRENTAL [Concomitant]
     Dosage: 400 mg, tid
  22. CALCIUM + VITAMIN D [Concomitant]
     Dosage: 500 mg, tid
  23. VITAMIN D NOS [Concomitant]
     Dosage: 2000 IU, qd
  24. SYMBICORT [Concomitant]
     Dosage: 2 DF, bid
  25. REVATIO [Concomitant]
     Dosage: 40 mg, tid

REACTIONS (14)
  - Terminal state [Unknown]
  - Pulmonary hypertension [Not Recovered/Not Resolved]
  - Road traffic accident [Recovering/Resolving]
  - Headache [Recovering/Resolving]
  - Neck injury [Recovering/Resolving]
  - Subdural haematoma [Recovering/Resolving]
  - Cerebral haemorrhage [Recovering/Resolving]
  - Total lung capacity decreased [Unknown]
  - Memory impairment [Not Recovered/Not Resolved]
  - Dyspnoea [Unknown]
  - Injection site discomfort [Unknown]
  - Overdose [Unknown]
  - Amnesia [Unknown]
  - Increased upper airway secretion [Unknown]
